FAERS Safety Report 13346805 (Version 2)
Quarter: 2017Q2

REPORT INFORMATION
  Report Type: Spontaneous
  Country: DE (occurrence: DE)
  Receive Date: 20170317
  Receipt Date: 20170502
  Transmission Date: 20170830
  Serious: Yes (Other)
  Sender: FDA-Public Use
  Company Number: PHHY2017DE039450

PATIENT
  Sex: Male

DRUGS (1)
  1. TASIGNA [Suspect]
     Active Substance: NILOTINIB
     Indication: CHRONIC MYELOID LEUKAEMIA
     Dosage: 600 MG, QD
     Route: 048
     Dates: start: 20161020, end: 20170310

REACTIONS (6)
  - Gamma-glutamyltransferase decreased [Unknown]
  - Haptoglobin increased [Unknown]
  - Blood bilirubin increased [Unknown]
  - Haemolytic anaemia [Recovered/Resolved]
  - Blood lactate dehydrogenase increased [Unknown]
  - Haemolysis [Recovered/Resolved]

NARRATIVE: CASE EVENT DATE: 20170217
